FAERS Safety Report 12840039 (Version 1)
Quarter: 2016Q4

REPORT INFORMATION
  Report Type: Report from Study
  Country: None (occurrence: US)
  Receive Date: 20161012
  Receipt Date: 20161012
  Transmission Date: 20170207
  Serious: Yes (Hospitalization, Other)
  Sender: FDA-Public Use
  Company Number: US-ABBVIE-16K-163-1746306-00

PATIENT
  Age: 59 Year
  Sex: Female

DRUGS (16)
  1. LYRICA [Concomitant]
     Active Substance: PREGABALIN
     Indication: PHANTOM PAIN
  2. OMEGA-3 ETHYL ESTER [Concomitant]
     Indication: HYPERTENSION
  3. CRESTOR [Concomitant]
     Active Substance: ROSUVASTATIN CALCIUM
     Indication: BLOOD CHOLESTEROL INCREASED
  4. TOUJEO [Concomitant]
     Active Substance: INSULIN GLARGINE
     Indication: INSULIN RESISTANCE
  5. HUMIRA [Suspect]
     Active Substance: ADALIMUMAB
     Indication: CROHN^S DISEASE
     Route: 058
     Dates: start: 20150726, end: 20160906
  6. OXYCODONE [Concomitant]
     Active Substance: OXYCODONE
     Indication: PAIN
  7. MONTELUKAST [Concomitant]
     Active Substance: MONTELUKAST SODIUM
     Indication: ASTHMA
  8. OXYCONTIN [Concomitant]
     Active Substance: OXYCODONE HYDROCHLORIDE
     Indication: PAIN
  9. LISINOPRIL. [Concomitant]
     Active Substance: LISINOPRIL
     Indication: HYPERTENSION
  10. PENTASA [Concomitant]
     Active Substance: MESALAMINE
     Indication: CROHN^S DISEASE
  11. DICLOFENAC [Concomitant]
     Active Substance: DICLOFENAC
     Indication: MUSCLE RELAXANT THERAPY
  12. FLEXERIL [Concomitant]
     Active Substance: CYCLOBENZAPRINE HYDROCHLORIDE
     Indication: MUSCLE SPASMS
  13. NOVOLOG [Concomitant]
     Active Substance: INSULIN ASPART
     Indication: DIABETES MELLITUS
  14. AMLODIPINE [Concomitant]
     Active Substance: AMLODIPINE BESYLATE
     Indication: HYPERTENSION
  15. OMEPRAZOLE. [Concomitant]
     Active Substance: OMEPRAZOLE
     Indication: GASTROOESOPHAGEAL REFLUX DISEASE
  16. ESCITALOPRAM [Concomitant]
     Active Substance: ESCITALOPRAM OXALATE
     Indication: DEPRESSION

REACTIONS (10)
  - Loss of consciousness [Recovered/Resolved]
  - Osteoarthritis [Recovering/Resolving]
  - Fall [Recovering/Resolving]
  - Hypoaesthesia [Recovered/Resolved]
  - Medical device site injury [Unknown]
  - Wound [Recovered/Resolved]
  - Dizziness [Recovered/Resolved]
  - Dysphagia [Recovered/Resolved]
  - Intervertebral disc degeneration [Recovering/Resolving]
  - Head injury [Recovering/Resolving]

NARRATIVE: CASE EVENT DATE: 20160509
